FAERS Safety Report 5779634-8 (Version None)
Quarter: 2008Q2

REPORT INFORMATION
  Report Type: 
  Country: None (occurrence: None)
  Receive Date: 20080619
  Receipt Date: 20080612
  Transmission Date: 20081010
  Serious: Yes (Hospitalization)
  Sender: FDA-Public Use
  Company Number: FR-PFIZER INC-2008049968

PATIENT
  Sex: Female

DRUGS (6)
  1. TAHOR [Suspect]
     Route: 048
  2. RISPERIDONE [Suspect]
     Route: 030
  3. SOLIAN [Suspect]
     Dosage: TEXT:0.5 DF TID EVERY DAY TDD:1.5 DF
  4. ORAP [Suspect]
     Route: 048
  5. NEXIUM [Suspect]
     Route: 048
  6. IXEL [Suspect]
     Route: 048

REACTIONS (2)
  - LUNG DISORDER [None]
  - SUBILEUS [None]
